FAERS Safety Report 4695929-3 (Version None)
Quarter: 2005Q2

REPORT INFORMATION
  Report Type: 
  Country: None (occurrence: None)
  Receive Date: 20050621
  Receipt Date: 20050606
  Transmission Date: 20051028
  Serious: Yes (Hospitalization, Other)
  Sender: FDA-Public Use
  Company Number: PT-MERCK-0506PRT00002

PATIENT
  Age: 69 Year
  Sex: Female
  Weight: 65 kg

DRUGS (13)
  1. PRIMAXIN [Suspect]
     Indication: FEBRILE BONE MARROW APLASIA
     Route: 042
     Dates: start: 20050510, end: 20050511
  2. CIPROFLOXACIN HYDROCHLORIDE [Concomitant]
     Route: 065
     Dates: start: 20050430, end: 20050510
  3. AMIKACIN [Concomitant]
     Route: 065
     Dates: start: 20050411, end: 20050422
  4. VANCOMYCIN [Concomitant]
     Route: 042
     Dates: start: 20050406, end: 20050412
  5. OMEPRAZOLE [Concomitant]
     Route: 065
     Dates: start: 20050316
  6. IDARUBICIN HYDROCHLORIDE [Concomitant]
     Route: 042
     Dates: start: 20050427, end: 20050429
  7. ETOPOSIDE [Concomitant]
     Route: 042
     Dates: start: 20050427, end: 20050429
  8. [THERAPY UNSPECIFIED] [Concomitant]
     Route: 042
     Dates: start: 20050428, end: 20050501
  9. SUCRALFATE [Concomitant]
     Route: 048
     Dates: start: 20050316, end: 20050316
  10. BROMAZEPAM [Concomitant]
     Route: 048
     Dates: start: 20050316
  11. ENALAPRIL MALEATE [Concomitant]
     Route: 048
  12. TRAMADOL HYDROCHLORIDE [Concomitant]
     Route: 065
  13. METOCLOPRAMIDE [Concomitant]
     Route: 065

REACTIONS (2)
  - CONVULSION [None]
  - LOCKED-IN SYNDROME [None]
